FAERS Safety Report 5585455-1 (Version None)
Quarter: 2008Q1

REPORT INFORMATION
  Report Type: 
  Country: None (occurrence: None)
  Receive Date: 20080104
  Receipt Date: 20080104
  Transmission Date: 20080703
  Serious: Yes (Hospitalization)
  Sender: FDA-Public Use
  Company Number: None

PATIENT
  Sex: Female
  Weight: 123.9 kg

DRUGS (9)
  1. LISINOPRIL [Suspect]
     Indication: HYPERTENSION
     Dosage: BID
     Dates: start: 20071107, end: 20071115
  2. IRBESARTAN [Suspect]
     Indication: HYPERTENSION
     Dosage: QD
     Dates: end: 20071116
  3. KCL TAB [Suspect]
     Indication: HYPOKALAEMIA
     Dosage: QD
     Dates: start: 20071113, end: 20071115
  4. ASPIRIN [Concomitant]
  5. FUROSEMIDE [Concomitant]
  6. FLUVASTATIN [Concomitant]
  7. CARVEDILOL [Concomitant]
  8. SYNTHROID [Concomitant]
  9. GLIMEPIRIDE [Concomitant]

REACTIONS (2)
  - BLOOD POTASSIUM INCREASED [None]
  - HYPOKALAEMIA [None]
